FAERS Safety Report 19222448 (Version 1)
Quarter: 2021Q2

REPORT INFORMATION
  Report Type: Spontaneous
  Country: US (occurrence: US)
  Receive Date: 20210506
  Receipt Date: 20210506
  Transmission Date: 20210717
  Serious: Yes (Other)
  Sender: FDA-Public Use
  Company Number: US-PFIZER INC-2021466419

PATIENT
  Age: 45 Year
  Sex: Female

DRUGS (1)
  1. IBRANCE [Suspect]
     Active Substance: PALBOCICLIB
     Indication: BREAST CANCER FEMALE
     Dosage: 125 MG, ONCE DAILY X 21 DAYS
     Dates: start: 20191211

REACTIONS (3)
  - Second primary malignancy [Not Recovered/Not Resolved]
  - Colon cancer [Not Recovered/Not Resolved]
  - Diarrhoea [Not Recovered/Not Resolved]
